FAERS Safety Report 23267422 (Version 1)
Quarter: 2023Q4

REPORT INFORMATION
  Report Type: Spontaneous
  Country: US (occurrence: None)
  Receive Date: 20231205
  Receipt Date: 20231205
  Transmission Date: 20240109
  Serious: No
  Sender: FDA-Public Use
  Company Number: None

PATIENT
  Sex: Female
  Weight: 109.7 kg

DRUGS (1)
  1. INLYTA [Suspect]
     Active Substance: AXITINIB
     Indication: Renal cancer
     Dosage: FREQUENCY : TWICE A DAY;?
     Route: 048
     Dates: start: 20231019

REACTIONS (7)
  - Fatigue [None]
  - Oral disorder [None]
  - Mucosal inflammation [None]
  - Stomatitis [None]
  - Rash [None]
  - Skin exfoliation [None]
  - Hypertension [None]
